FAERS Safety Report 7873729-0 (Version None)
Quarter: 2011Q4

REPORT INFORMATION
  Report Type: 
  Country: None (occurrence: None)
  Receive Date: 20111030
  Receipt Date: 20110510
  Transmission Date: 20120403
  Serious: No
  Sender: FDA-Public Use
  Company Number: US-AMGEN-USASP2011024150

PATIENT
  Age: 13 Year
  Sex: Male

DRUGS (2)
  1. ENBREL [Suspect]
     Indication: PSORIASIS
     Dosage: 50 MG, 2 TIMES/WK
     Dates: start: 20110101
  2. METHOTREXATE [Concomitant]
     Dates: start: 20101001

REACTIONS (2)
  - INJECTION SITE PAIN [None]
  - INJECTION SITE DISCHARGE [None]
